FAERS Safety Report 18588788 (Version 1)
Quarter: 2020Q4

REPORT INFORMATION
  Report Type: Spontaneous
  Country: US (occurrence: US)
  Receive Date: 20201208
  Receipt Date: 20201208
  Transmission Date: 20210114
  Serious: Yes (Hospitalization, Other)
  Sender: FDA-Public Use
  Company Number: US-CIPLA LTD.-2020US09027

PATIENT

DRUGS (4)
  1. WARFARIN [Suspect]
     Active Substance: WARFARIN
     Dosage: 15 MG 5 DAYS PER WEEK AND 10 MG 2 DAYS PER WEEK
     Route: 065
  2. WARFARIN [Suspect]
     Active Substance: WARFARIN
     Dosage: 5 MG PER DAY
     Route: 065
  3. WARFARIN [Suspect]
     Active Substance: WARFARIN
     Dosage: 15 MG PER DAY
     Route: 065
  4. WARFARIN [Suspect]
     Active Substance: WARFARIN
     Indication: ANTICOAGULANT THERAPY
     Dosage: 10 MG/ DAY
     Route: 065

REACTIONS (12)
  - Coronary artery thrombosis [Recovered/Resolved]
  - Cardiogenic shock [Recovered/Resolved]
  - Respiratory distress [Recovered/Resolved]
  - Anaemia [Recovered/Resolved]
  - Multiple organ dysfunction syndrome [Recovered/Resolved]
  - Condition aggravated [Recovered/Resolved]
  - International normalised ratio fluctuation [Recovered/Resolved]
  - Liver injury [Recovered/Resolved]
  - Lactic acidosis [Recovered/Resolved]
  - Thrombocytopenia [Recovered/Resolved]
  - Coagulopathy [Recovered/Resolved]
  - Aortic valve incompetence [Recovered/Resolved]
